FAERS Safety Report 25502283 (Version 1)
Quarter: 2025Q3

REPORT INFORMATION
  Report Type: Spontaneous
  Country: GB (occurrence: GB)
  Receive Date: 20250702
  Receipt Date: 20250702
  Transmission Date: 20251020
  Serious: Yes (Hospitalization)
  Sender: ACCORD
  Company Number: GB-MLMSERVICE-20250616-PI544683-00270-1

PATIENT
  Age: 72 Year
  Sex: Male

DRUGS (2)
  1. METHOTREXATE [Suspect]
     Active Substance: METHOTREXATE
     Indication: Sarcoidosis
     Route: 048
  2. PREDNISOLONE [Suspect]
     Active Substance: PREDNISOLONE
     Indication: Sarcoidosis
     Route: 048

REACTIONS (3)
  - Disseminated nocardiosis [Recovering/Resolving]
  - Brain abscess [Recovering/Resolving]
  - Off label use [Unknown]
